FAERS Safety Report 4686395-2 (Version None)
Quarter: 2005Q2

REPORT INFORMATION
  Report Type: 
  Country: None (occurrence: None)
  Receive Date: 20050606
  Receipt Date: 20050526
  Transmission Date: 20051028
  Serious: Yes (Hospitalization)
  Sender: FDA-Public Use
  Company Number: 2005081980

PATIENT
  Age: 80 Year
  Sex: Female

DRUGS (8)
  1. ATARAX [Suspect]
     Indication: ILL-DEFINED DISORDER
     Dosage: 12.5 MG, ORAL
     Route: 048
     Dates: end: 20050425
  2. CELIPROLOL HYDROCHLORIDE        (CELIPROLOL HYDROCHLORIDE) [Suspect]
     Indication: CEREBROVASCULAR ACCIDENT
     Dosage: 200 MG, ORAL
     Route: 048
     Dates: start: 20050301, end: 20050425
  3. INDAPAMIDE [Suspect]
     Indication: CEREBROVASCULAR ACCIDENT
     Dosage: 1.5 MG, ORAL
     Route: 048
     Dates: start: 20050301, end: 20050425
  4. CORVASAL     (MOLSIDOMINE) [Suspect]
     Indication: ILL-DEFINED DISORDER
     Dosage: ORAL
     Route: 048
  5. PLAVIX [Suspect]
     Indication: CEREBROVASCULAR ACCIDENT
     Dosage: ORAL
     Route: 048
     Dates: start: 20050301, end: 20050425
  6. COZAAR [Suspect]
     Indication: CEREBROVASCULAR ACCIDENT
     Dosage: ORAL
     Route: 048
     Dates: start: 20050301, end: 20050425
  7. TRIMEBUTINE             (TRIMEBUTINE) [Concomitant]
  8. GLYCERYL TRINITRATE          (GLYCERYL TRINITRATE) [Concomitant]

REACTIONS (5)
  - EPISTAXIS [None]
  - GINGIVAL BLEEDING [None]
  - PETECHIAE [None]
  - SPINAL MYELOGRAM ABNORMAL [None]
  - THROMBOCYTOPENIA [None]
